FAERS Safety Report 15308063 (Version 1)
Quarter: 2018Q3

REPORT INFORMATION
  Report Type: Spontaneous
  Country: US (occurrence: US)
  Receive Date: 20180822
  Receipt Date: 20180822
  Transmission Date: 20181010
  Serious: Yes (Hospitalization)
  Sender: FDA-Public Use
  Company Number: US-UNITED THERAPEUTICS-UNT-2018-013104

PATIENT
  Age: 56 Year
  Sex: Female
  Weight: 79.37 kg

DRUGS (3)
  1. REMODULIN [Suspect]
     Active Substance: TREPROSTINIL
     Indication: PULMONARY ARTERIAL HYPERTENSION
     Dosage: 0.05 ?G/KG, CONTINUING
     Route: 041
     Dates: start: 20180522
  2. REMODULIN [Suspect]
     Active Substance: TREPROSTINIL
     Dosage: 0.056 ?G/KG, CONTINUING
     Route: 041
  3. WARFARIN [Concomitant]
     Active Substance: WARFARIN
     Indication: PRODUCT USED FOR UNKNOWN INDICATION
     Route: 065

REACTIONS (2)
  - Epistaxis [Unknown]
  - Haemoglobin decreased [Unknown]

NARRATIVE: CASE EVENT DATE: 2018
